FAERS Safety Report 4431400-1 (Version None)
Quarter: 2004Q3

REPORT INFORMATION
  Report Type: 
  Country: None (occurrence: None)
  Receive Date: 20040818
  Receipt Date: 20040803
  Transmission Date: 20050211
  Serious: Yes (Life-Threatening)
  Sender: FDA-Public Use
  Company Number: F01200402134

PATIENT
  Age: 69 Year
  Sex: Male

DRUGS (3)
  1. OXALIPLATIN [Suspect]
     Indication: COLORECTAL CANCER
     Dosage: 140 MG Q3W; INTRAVENOUS NOS
     Route: 042
     Dates: start: 20040713, end: 20040713
  2. XELODA [Suspect]
     Dosage: 1300 MG BID ON DAYS 2 TO 15, Q3W; ORAL
     Route: 048
     Dates: start: 20040113
  3. IRINOTECAN [Suspect]
     Dosage: 300 MG Q3W; INTRAVENOUS NOS
     Route: 042
     Dates: start: 20040713, end: 20040713

REACTIONS (7)
  - ANAEMIA [None]
  - FEBRILE NEUTROPENIA [None]
  - HYPOTENSION [None]
  - INTESTINAL PERFORATION [None]
  - LEUKOPENIA [None]
  - SEPSIS [None]
  - THROMBOCYTOPENIA [None]
